FAERS Safety Report 5593439-2 (Version None)
Quarter: 2008Q1

REPORT INFORMATION
  Report Type: 
  Country: None (occurrence: None)
  Receive Date: 20080116
  Receipt Date: 20080104
  Transmission Date: 20080703
  Serious: Yes (Other)
  Sender: FDA-Public Use
  Company Number: US-BRISTOL-MYERS SQUIBB COMPANY-14034409

PATIENT

DRUGS (3)
  1. REYATAZ [Suspect]
     Indication: HIV INFECTION
  2. DIDANOSINE [Suspect]
  3. ZERIT [Suspect]
     Indication: HIV INFECTION

REACTIONS (2)
  - BLOOD BILIRUBIN INCREASED [None]
  - CONFUSIONAL STATE [None]
